FAERS Safety Report 5240628-2 (Version None)
Quarter: 2007Q1

REPORT INFORMATION
  Report Type: 
  Country: None (occurrence: None)
  Receive Date: 20061208
  Receipt Date: 20050511
  Transmission Date: 20070707
  Serious: Yes (Other)
  Sender: FDA-Public Use
  Company Number: 2005UW06290

PATIENT
  Age: 48 Year
  Sex: Male
  Weight: 76.2043 kg

DRUGS (2)
  1. CRESTOR [Suspect]
     Dosage: 10 MG PO
     Route: 048
     Dates: start: 20040920, end: 20050128
  2. CRESTOR [Suspect]
     Dosage: 20 MG PO
     Route: 048
     Dates: start: 20050131

REACTIONS (1)
  - LOW DENSITY LIPOPROTEIN INCREASED [None]
